FAERS Safety Report 7793471-4 (Version None)
Quarter: 2011Q4

REPORT INFORMATION
  Report Type: 
  Country: None (occurrence: None)
  Receive Date: 20111003
  Receipt Date: 20110921
  Transmission Date: 20120403
  Serious: No
  Sender: FDA-Public Use
  Company Number: US-B.I. PHARMACEUTICALS,INC./RIDGEFIELD-2011-BP-22603BP

PATIENT
  Sex: Female

DRUGS (18)
  1. PRADAXA [Suspect]
     Indication: ATRIAL FIBRILLATION
     Dosage: 300 MG
     Route: 048
     Dates: start: 20110920
  2. COREG [Concomitant]
     Indication: HYPERTENSION
  3. CRESTOR [Concomitant]
     Indication: BLOOD CHOLESTEROL INCREASED
  4. VEGETABLE LAXATIVE [Concomitant]
     Indication: CONSTIPATION
  5. VIT B12 [Concomitant]
     Indication: SUPPLEMENTATION THERAPY
  6. KELP [Concomitant]
     Indication: ELECTROLYTE SUBSTITUTION THERAPY
  7. LASIX [Concomitant]
     Indication: SWELLING
  8. ASPIRIN [Concomitant]
  9. CENTRUM SILVER [Concomitant]
     Indication: PROPHYLAXIS
  10. PRASTERONE [Concomitant]
     Indication: VITAMIN SUPPLEMENTATION
  11. NORVASC [Concomitant]
     Indication: HYPERTENSION
  12. LOVAZA [Concomitant]
  13. DIGOXIN [Concomitant]
     Indication: ARRHYTHMIA
  14. MIRAPEX [Concomitant]
     Indication: RESTLESS LEGS SYNDROME
  15. FISH OIL [Concomitant]
     Indication: SUPPLEMENTATION THERAPY
  16. KLONOPIN [Concomitant]
     Indication: SLEEP DISORDER
  17. CAL VIT D [Concomitant]
     Indication: SUPPLEMENTATION THERAPY
  18. POTASSIUM [Concomitant]
     Indication: SUPPLEMENTATION THERAPY

REACTIONS (1)
  - FATIGUE [None]
